FAERS Safety Report 12829852 (Version 1)
Quarter: 2016Q4

REPORT INFORMATION
  Report Type: Spontaneous
  Country: US (occurrence: US)
  Receive Date: 20161007
  Receipt Date: 20161007
  Transmission Date: 20170207
  Serious: No
  Sender: FDA-Public Use
  Company Number: US-SA-2016SA073443

PATIENT
  Age: 64 Year
  Sex: Female

DRUGS (10)
  1. CELEBREX [Concomitant]
     Active Substance: CELECOXIB
  2. GRALISE [Concomitant]
     Active Substance: GABAPENTIN
  3. AUBAGIO [Suspect]
     Active Substance: TERIFLUNOMIDE
     Indication: MULTIPLE SCLEROSIS
     Route: 048
  4. BACLOFEN. [Concomitant]
     Active Substance: BACLOFEN
  5. NUVIGIL [Concomitant]
     Active Substance: ARMODAFINIL
  6. GABAPENTIN. [Concomitant]
     Active Substance: GABAPENTIN
  7. NAMENDA [Concomitant]
     Active Substance: MEMANTINE HYDROCHLORIDE
  8. AMPYRA [Concomitant]
     Active Substance: DALFAMPRIDINE
  9. COUMADIN [Concomitant]
     Active Substance: WARFARIN SODIUM
  10. TOPROL XL [Concomitant]
     Active Substance: METOPROLOL SUCCINATE

REACTIONS (3)
  - Fall [Unknown]
  - Back injury [Unknown]
  - Gait disturbance [Unknown]
